FAERS Safety Report 25415183 (Version 1)
Quarter: 2025Q2

REPORT INFORMATION
  Report Type: Report from Study
  Country: US (occurrence: US)
  Receive Date: 20250609
  Receipt Date: 20250609
  Transmission Date: 20250716
  Serious: Yes (Hospitalization)
  Sender: ABBVIE
  Company Number: US-ABBVIE-6296710

PATIENT
  Age: 86 Year
  Sex: Male

DRUGS (1)
  1. HUMIRA [Suspect]
     Active Substance: ADALIMUMAB
     Indication: Psoriasis
     Route: 058
     Dates: start: 20180126

REACTIONS (4)
  - Fall [Recovering/Resolving]
  - Contusion [Unknown]
  - Head injury [Unknown]
  - Eye contusion [Unknown]

NARRATIVE: CASE EVENT DATE: 20250101
